FAERS Safety Report 21308657 (Version 5)
Quarter: 2023Q2

REPORT INFORMATION
  Report Type: Spontaneous
  Country: US (occurrence: US)
  Receive Date: 20220908
  Receipt Date: 20230622
  Transmission Date: 20230721
  Serious: Yes (Other)
  Sender: FDA-Public Use
  Company Number: US-PFIZER INC-PV202200058849

PATIENT
  Age: 85 Year
  Sex: Male

DRUGS (2)
  1. XELJANZ XR [Suspect]
     Active Substance: TOFACITINIB CITRATE
     Indication: Rheumatoid arthritis
     Dosage: 11 MG, DAILY
     Route: 048
     Dates: start: 2021
  2. XELJANZ XR [Suspect]
     Active Substance: TOFACITINIB CITRATE
     Dosage: 11 MG, DAILY
     Route: 048
     Dates: start: 202209

REACTIONS (7)
  - Lumbar spinal stenosis [Unknown]
  - Condition aggravated [Unknown]
  - Pain [Recovering/Resolving]
  - Gait disturbance [Unknown]
  - Discomfort [Unknown]
  - Coagulation factor decreased [Unknown]
  - Drug ineffective [Unknown]
